FAERS Safety Report 7129056-2 (Version None)
Quarter: 2010Q4

REPORT INFORMATION
  Report Type: 
  Country: None (occurrence: None)
  Receive Date: 20101116
  Receipt Date: 20101101
  Transmission Date: 20110411
  Serious: Yes (Other)
  Sender: FDA-Public Use
  Company Number: 2010AP002329

PATIENT
  Age: 54 Year
  Sex: Female
  Weight: 77.1115 kg

DRUGS (5)
  1. TRAZODONE HYDROCHLORIDE [Suspect]
     Dates: start: 20100101
  2. CELEXA [Suspect]
     Dates: start: 20100101
  3. CHANTIX [Suspect]
     Indication: SMOKING CESSATION THERAPY
     Dosage: 0.5 MG; QD; PO, 1 MG; BID; PO
     Route: 048
     Dates: start: 20100801, end: 20100819
  4. CHANTIX [Suspect]
     Indication: SMOKING CESSATION THERAPY
     Dosage: 0.5 MG; QD; PO, 1 MG; BID; PO
     Route: 048
     Dates: start: 20100729
  5. ATORVASTATIN [Concomitant]

REACTIONS (22)
  - ABASIA [None]
  - ACTIVITIES OF DAILY LIVING IMPAIRED [None]
  - ANXIETY [None]
  - CHILLS [None]
  - DEPRESSION [None]
  - DYSSTASIA [None]
  - EATING DISORDER [None]
  - FEELING ABNORMAL [None]
  - GASTROINTESTINAL DISORDER [None]
  - HALLUCINATION [None]
  - HOMICIDAL IDEATION [None]
  - IMPAIRED DRIVING ABILITY [None]
  - MEMORY IMPAIRMENT [None]
  - MENTAL DISORDER [None]
  - MENTAL IMPAIRMENT [None]
  - NAUSEA [None]
  - PERSONALITY CHANGE [None]
  - PRODUCT SOLUBILITY ABNORMAL [None]
  - SPEECH DISORDER [None]
  - SUICIDAL IDEATION [None]
  - THINKING ABNORMAL [None]
  - UNEVALUABLE EVENT [None]
